FAERS Safety Report 9586203 (Version 1)
Quarter: 2013Q4

REPORT INFORMATION
  Report Type: Spontaneous
  Country: CA (occurrence: None)
  Receive Date: 20131001
  Receipt Date: 20131001
  Transmission Date: 20140711
  Serious: Yes (Other)
  Sender: FDA-Public Use
  Company Number: 2013AP008314

PATIENT
  Sex: Female

DRUGS (1)
  1. APO-CALCITONIN [Suspect]
     Dates: start: 2007, end: 201308

REACTIONS (1)
  - Metastatic neoplasm [None]
